FAERS Safety Report 6292132-0 (Version None)
Quarter: 2009Q3

REPORT INFORMATION
  Report Type: 
  Country: None (occurrence: None)
  Receive Date: 20090730
  Receipt Date: 20090730
  Transmission Date: 20100115
  Serious: Yes (Other)
  Sender: FDA-Public Use
  Company Number: None

PATIENT
  Sex: Female

DRUGS (1)
  1. OMEPRAZOLE [Suspect]
     Dosage: 20MG, 1 CAP TWICE DAILY, PERIARTICULAR
     Route: 052
     Dates: start: 20090710, end: 20090728

REACTIONS (1)
  - DRUG INEFFECTIVE [None]
